FAERS Safety Report 9471468 (Version 1)
Quarter: 2013Q3

REPORT INFORMATION
  Report Type: Spontaneous
  Country: US (occurrence: US)
  Receive Date: 20130822
  Receipt Date: 20130822
  Transmission Date: 20140515
  Serious: Yes (Life-Threatening, Other)
  Sender: FDA-Public Use
  Company Number: US-PFIZER INC-2013242546

PATIENT
  Age: 36 Year
  Sex: Male
  Weight: 115 kg

DRUGS (4)
  1. VECURONIUM BROMIDE [Suspect]
     Indication: INDUCTION OF ANAESTHESIA
     Dosage: 10 MG, UNK
     Route: 042
  2. PROPOFOL [Suspect]
     Indication: INDUCTION OF ANAESTHESIA
     Dosage: 200 MG, UNK
     Route: 042
  3. FENTANYL [Suspect]
     Indication: INDUCTION OF ANAESTHESIA
     Dosage: 200 UG, UNK
     Route: 042
  4. DESFLURANE [Suspect]
     Indication: MAINTENANCE OF ANAESTHESIA
     Dosage: 5%-9%

REACTIONS (1)
  - Hyperthermia malignant [Recovered/Resolved]
